FAERS Safety Report 6764541-4 (Version None)
Quarter: 2010Q2

REPORT INFORMATION
  Report Type: 
  Country: None (occurrence: None)
  Receive Date: 20100609
  Receipt Date: 20100512
  Transmission Date: 20101027
  Serious: No
  Sender: FDA-Public Use
  Company Number: 2010011747

PATIENT
  Sex: Male

DRUGS (1)
  1. CHILDREN'S ZYRTEC ALLERGY [Suspect]
     Indication: LIMB DISCOMFORT
     Dosage: 2 TEASPOONFULS EVERY FOUR HOURS, ORAL
     Route: 048
     Dates: start: 20100418, end: 20100420

REACTIONS (4)
  - ADVERSE EVENT [None]
  - OFF LABEL USE [None]
  - OVERDOSE [None]
  - PRODUCT QUALITY ISSUE [None]
